FAERS Safety Report 9871864 (Version 1)
Quarter: 2014Q1

REPORT INFORMATION
  Report Type: Spontaneous
  Country: US (occurrence: US)
  Receive Date: 20140205
  Receipt Date: 20140205
  Transmission Date: 20141002
  Serious: No
  Sender: FDA-Public Use
  Company Number: US-ALLERGAN-1305682US

PATIENT
  Age: 72 Year
  Sex: Female

DRUGS (1)
  1. BOTOX [Suspect]
     Indication: OESOPHAGEAL ACHALASIA
     Dosage: UNK UNK, SINGLE
     Dates: start: 201303, end: 201303

REACTIONS (4)
  - Off label use [Unknown]
  - Asthenia [Unknown]
  - Abasia [Recovering/Resolving]
  - Muscular weakness [Recovering/Resolving]
